FAERS Safety Report 7666183-5 (Version None)
Quarter: 2011Q3

REPORT INFORMATION
  Report Type: 
  Country: None (occurrence: None)
  Receive Date: 20110806
  Receipt Date: 20110422
  Transmission Date: 20111222
  Serious: No
  Sender: FDA-Public Use
  Company Number: US-ABBOTT-11P-163-0721023-00

PATIENT
  Sex: Male
  Weight: 113.5 kg

DRUGS (3)
  1. PLAVIX [Concomitant]
     Indication: PRODUCT USED FOR UNKNOWN INDICATION
  2. CRESTOR [Concomitant]
     Indication: PRODUCT USED FOR UNKNOWN INDICATION
  3. NIASPAN [Suspect]
     Indication: HIGH DENSITY LIPOPROTEIN INCREASED
     Dosage: DAILY AT NIGHT
     Dates: start: 20110316

REACTIONS (2)
  - FLUSHING [None]
  - SKIN BURNING SENSATION [None]
